FAERS Safety Report 7775897-8 (Version None)
Quarter: 2011Q3

REPORT INFORMATION
  Report Type: 
  Country: None (occurrence: None)
  Receive Date: 20110923
  Receipt Date: 20110912
  Transmission Date: 20111222
  Serious: Yes (Hospitalization, Other)
  Sender: FDA-Public Use
  Company Number: US-ELI_LILLY_AND_COMPANY-US201102004332

PATIENT
  Sex: Female

DRUGS (13)
  1. SEROQUEL [Concomitant]
  2. FORTEO [Suspect]
     Dosage: 20 UG, QD
     Route: 058
  3. VITAMIN D [Concomitant]
  4. ACTONEL [Concomitant]
  5. HYDROCODONE [Concomitant]
  6. FLUOXETINE [Concomitant]
  7. METRONIDAZOLE [Concomitant]
  8. TRAMADOL HCL [Concomitant]
  9. REMICADE [Concomitant]
     Indication: CROHN'S DISEASE
  10. PREDNISONE [Concomitant]
  11. FORTEO [Suspect]
     Indication: OSTEOPOROSIS
     Dosage: 20 UG, QD
     Route: 058
     Dates: start: 20091230
  12. ASACOL [Concomitant]
  13. XANAX [Concomitant]

REACTIONS (13)
  - HYPOAESTHESIA [None]
  - FALL [None]
  - LIGAMENT SPRAIN [None]
  - HYPOKINESIA [None]
  - LIMB DISCOMFORT [None]
  - CYSTITIS [None]
  - LOSS OF CONTROL OF LEGS [None]
  - DEPRESSION [None]
  - HOSPITALISATION [None]
  - PAIN IN EXTREMITY [None]
  - SHOULDER DEFORMITY [None]
  - SWELLING [None]
  - UPPER LIMB FRACTURE [None]
